FAERS Safety Report 16167602 (Version 2)
Quarter: 2020Q3

REPORT INFORMATION
  Report Type: Spontaneous
  Country: PR (occurrence: US)
  Receive Date: 20190408
  Receipt Date: 20200902
  Transmission Date: 20201102
  Serious: Yes (Hospitalization, Other)
  Sender: FDA-Public Use
  Company Number: PR-JNJFOC-20190341358

PATIENT
  Age: 5 Decade
  Sex: Male

DRUGS (3)
  1. KAYEXALATE [Concomitant]
     Active Substance: SODIUM POLYSTYRENE SULFONATE
  2. XARELTO [Suspect]
     Active Substance: RIVAROXABAN
     Indication: DEEP VEIN THROMBOSIS
     Route: 048
  3. COUMADIN [Suspect]
     Active Substance: WARFARIN SODIUM
     Indication: DEEP VEIN THROMBOSIS

REACTIONS (2)
  - Haemorrhage [Unknown]
  - Haematuria [Unknown]

NARRATIVE: CASE EVENT DATE: 201307
